FAERS Safety Report 4721565-6 (Version None)
Quarter: 2005Q3

REPORT INFORMATION
  Report Type: 
  Country: None (occurrence: None)
  Receive Date: 20050721
  Receipt Date: 20041130
  Transmission Date: 20060218
  Serious: Yes (Other)
  Sender: FDA-Public Use
  Company Number: US-BRISTOL-MYERS SQUIBB COMPANY-12779013

PATIENT

DRUGS (2)
  1. WARFARIN SODIUM [Suspect]
  2. HEPARIN [Concomitant]

REACTIONS (1)
  - DEEP VEIN THROMBOSIS [None]
